FAERS Safety Report 13734193 (Version 2)
Quarter: 2017Q3

REPORT INFORMATION
  Report Type: Spontaneous
  Country: US (occurrence: US)
  Receive Date: 20170708
  Receipt Date: 20170815
  Transmission Date: 20171127
  Serious: Yes (Other)
  Sender: FDA-Public Use
  Company Number: US-009507513-1706USA009302

PATIENT
  Age: 23 Year
  Sex: Female
  Weight: 119.27 kg

DRUGS (1)
  1. NEXPLANON [Suspect]
     Active Substance: ETONOGESTREL
     Indication: CONTRACEPTION
     Dosage: 3 YEAR IMPLANT IN THE LEFT ARM
     Route: 059
     Dates: start: 201611

REACTIONS (9)
  - Device expulsion [Recovered/Resolved]
  - Headache [Unknown]
  - Nausea [Unknown]
  - Gastric disorder [Unknown]
  - Weight increased [Unknown]
  - Sleep disorder [Unknown]
  - Dizziness [Unknown]
  - Chest pain [Unknown]
  - Suicidal ideation [Unknown]

NARRATIVE: CASE EVENT DATE: 201611
